FAERS Safety Report 21562556 (Version 1)
Quarter: 2022Q4

REPORT INFORMATION
  Report Type: Spontaneous
  Country: RU (occurrence: RU)
  Receive Date: 20221107
  Receipt Date: 20221107
  Transmission Date: 20230112
  Serious: Yes (Other)
  Sender: FDA-Public Use
  Company Number: RU-CHIESI-2022CHF05778

PATIENT
  Age: 14 Year
  Sex: Female

DRUGS (6)
  1. BRONCHITOL [Suspect]
     Active Substance: MANNITOL
     Indication: Pulmonary function challenge test
     Dosage: 40 MG
  2. BRONCHITOL [Suspect]
     Active Substance: MANNITOL
     Dosage: 80 MG, 2 CAPSULES OF 40 MG
  3. BRONCHITOL [Suspect]
     Active Substance: MANNITOL
     Dosage: 120 MG, (3 CAPSULES OF 40 MG)
  4. BRONCHITOL [Suspect]
     Active Substance: MANNITOL
     Indication: Pulmonary function challenge test
     Dosage: 40 MG
  5. BRONCHITOL [Suspect]
     Active Substance: MANNITOL
     Dosage: 80 MG, (2 CAPSULES OF 40 MG)
  6. BRONCHITOL [Suspect]
     Active Substance: MANNITOL
     Dosage: 120 MG ( 3 CAPSULES OF 40 MG)

REACTIONS (1)
  - Respiratory failure [Unknown]
